FAERS Safety Report 8949792 (Version 3)
Quarter: 2014Q3

REPORT INFORMATION
  Report Type: Spontaneous
  Country: BD (occurrence: BD)
  Receive Date: 20121206
  Receipt Date: 20140815
  Transmission Date: 20150326
  Serious: Yes (Death, Hospitalization)
  Sender: FDA-Public Use
  Company Number: PHHY2012BD112052

PATIENT
  Age: 75 Year
  Sex: Female

DRUGS (6)
  1. RAMIPRIL. [Concomitant]
     Active Substance: RAMIPRIL
     Dosage: 5 MG, DAILY
     Route: 048
     Dates: start: 20120711
  2. AMLODIPINE W/ATENOLOL [Concomitant]
     Dosage: UNK UKN, UNK
     Route: 048
  3. MEMANTINE [Concomitant]
     Active Substance: MEMANTINE
     Dosage: 5 MG, DAILY
     Route: 048
  4. CLOPIDOGREL [Concomitant]
     Active Substance: CLOPIDOGREL BISULFATE
     Dosage: UNK UKN, UNK
     Route: 048
  5. CLONAZEPAM. [Concomitant]
     Active Substance: CLONAZEPAM
     Dosage: 0.5 MG, DAILY
     Route: 048
  6. EXELON PATCH [Suspect]
     Active Substance: RIVASTIGMINE
     Indication: DEMENTIA
     Dosage: 4.6 MG/24 HOURS (5 CM)
     Route: 062
     Dates: start: 20120711

REACTIONS (5)
  - Logorrhoea [Unknown]
  - Disorientation [Unknown]
  - Pollakiuria [Unknown]
  - General physical health deterioration [Fatal]
  - Asthenia [Unknown]

NARRATIVE: CASE EVENT DATE: 20120711
